FAERS Safety Report 5943612-6 (Version None)
Quarter: 2008Q4

REPORT INFORMATION
  Report Type: 
  Country: None (occurrence: None)
  Receive Date: 20081106
  Receipt Date: 20081103
  Transmission Date: 20090506
  Serious: Yes (Death)
  Sender: FDA-Public Use
  Company Number: BE-ASTRAZENECA-2008AC02844

PATIENT
  Age: 12 Year
  Sex: Male
  Weight: 55 kg

DRUGS (1)
  1. DIPRIVAN [Suspect]
     Route: 042

REACTIONS (2)
  - OVERDOSE [None]
  - PROPOFOL INFUSION SYNDROME [None]
